FAERS Safety Report 7543887-6 (Version None)
Quarter: 2011Q2

REPORT INFORMATION
  Report Type: 
  Country: None (occurrence: None)
  Receive Date: 20110613
  Receipt Date: 20110602
  Transmission Date: 20111010
  Serious: Yes (Other)
  Sender: FDA-Public Use
  Company Number: US-ROCHE-781192

PATIENT
  Sex: Female

DRUGS (12)
  1. ABRAXANE [Concomitant]
     Dates: start: 20110201
  2. HERCEPTIN [Suspect]
     Route: 042
     Dates: start: 20090101
  3. HALAVEN [Concomitant]
  4. ADRIAMYCIN PFS [Concomitant]
     Dates: start: 20010101
  5. HERCEPTIN [Suspect]
     Route: 042
     Dates: start: 20010101, end: 20060101
  6. TYKERB [Concomitant]
     Dates: start: 20100101
  7. TAXOTERE [Concomitant]
     Dates: start: 20010101
  8. TAMOXIFEN CITRATE [Concomitant]
     Dates: start: 20020101, end: 20060601
  9. XELODA [Suspect]
     Route: 048
     Dates: start: 20090101, end: 20100101
  10. AVASTIN [Suspect]
     Route: 065
     Dates: start: 20090101, end: 20100901
  11. NAVELBINE [Concomitant]
     Dates: start: 20090101, end: 20101001
  12. ARIMIDEX [Concomitant]
     Dates: start: 20060901

REACTIONS (2)
  - BREAST NEOPLASM [None]
  - OSTEONECROSIS OF JAW [None]
